FAERS Safety Report 17823227 (Version 1)
Quarter: 2020Q2

REPORT INFORMATION
  Report Type: Spontaneous
  Country: US (occurrence: US)
  Receive Date: 20200522
  Receipt Date: 20200522
  Transmission Date: 20200714
  Serious: Yes (Hospitalization)
  Sender: FDA-Public Use
  Company Number: None

PATIENT
  Age: 82 Year
  Sex: Male

DRUGS (15)
  1. GEMFIBROZIL. [Concomitant]
     Active Substance: GEMFIBROZIL
  2. ONDANSETRON [Concomitant]
     Active Substance: ONDANSETRON
  3. VITAMIN B12 [Concomitant]
     Active Substance: CYANOCOBALAMIN
  4. HYDROCHLOROTHIAZIDE. [Concomitant]
     Active Substance: HYDROCHLOROTHIAZIDE
  5. SYMBICORT [Concomitant]
     Active Substance: BUDESONIDE\FORMOTEROL FUMARATE DIHYDRATE
  6. LOSARTAN POTASSIUM. [Concomitant]
     Active Substance: LOSARTAN POTASSIUM
  7. METOPROLOL SUCCINATE ER [Concomitant]
     Active Substance: METOPROLOL SUCCINATE
  8. VITAMIN A [Concomitant]
     Active Substance: VITAMIN A
  9. PREDNISONE. [Concomitant]
     Active Substance: PREDNISONE
  10. PROCHLORPERAZINE MALEATE. [Concomitant]
     Active Substance: PROCHLORPERAZINE MALEATE
  11. LANTUS [Concomitant]
     Active Substance: INSULIN GLARGINE
  12. VOTRIENT [Suspect]
     Active Substance: PAZOPANIB HYDROCHLORIDE
     Indication: RENAL CANCER
     Route: 048
     Dates: start: 20190405
  13. RANITIDINE 75 [Concomitant]
     Active Substance: RANITIDINE HYDROCHLORIDE
  14. VITAMIN D [Concomitant]
     Active Substance: VITAMIN D NOS
  15. AMLODIPINE BESYLATE. [Concomitant]
     Active Substance: AMLODIPINE BESYLATE

REACTIONS (1)
  - Hospitalisation [None]
